FAERS Safety Report 16284837 (Version 5)
Quarter: 2022Q3

REPORT INFORMATION
  Report Type: Report from Study
  Country: CA (occurrence: CA)
  Receive Date: 20190508
  Receipt Date: 20220708
  Transmission Date: 20221027
  Serious: Yes (Other)
  Sender: FDA-Public Use
  Company Number: CA-GLAXOSMITHKLINE-CA2019GSK079079

PATIENT

DRUGS (7)
  1. MEPOLIZUMAB [Suspect]
     Active Substance: MEPOLIZUMAB
     Indication: Asthma
     Dosage: 100 MG, Z MONTHLY
     Route: 058
     Dates: start: 20180212
  2. BREO ELLIPTA [Suspect]
     Active Substance: FLUTICASONE FUROATE\VILANTEROL TRIFENATATE
     Indication: Product used for unknown indication
     Dosage: UNK
     Route: 055
     Dates: start: 20170710
  3. VENTOLIN [Suspect]
     Active Substance: ALBUTEROL SULFATE
     Indication: Product used for unknown indication
     Dosage: UNK
  4. SINGULAIR [Suspect]
     Active Substance: MONTELUKAST SODIUM
     Indication: Product used for unknown indication
     Dosage: UNK
     Dates: start: 20170710
  5. ADVAIR HFA [Suspect]
     Active Substance: FLUTICASONE PROPIONATE\SALMETEROL XINAFOATE
     Indication: Product used for unknown indication
     Dosage: UNK
  6. PULMICORT TURBUHALER [Suspect]
     Active Substance: BUDESONIDE
     Indication: Product used for unknown indication
     Dosage: UNK
     Dates: start: 201801
  7. PREDNISONE [Concomitant]
     Active Substance: PREDNISONE
     Indication: Asthma
     Dosage: UNK
     Dates: start: 2020

REACTIONS (2)
  - Hyperthyroidism [Unknown]
  - Pharyngitis [Unknown]

NARRATIVE: CASE EVENT DATE: 20190101
